FAERS Safety Report 14145712 (Version 1)
Quarter: 2017Q4

REPORT INFORMATION
  Report Type: Spontaneous
  Country: US (occurrence: US)
  Receive Date: 20171031
  Receipt Date: 20171031
  Transmission Date: 20180321
  Serious: No
  Sender: FDA-Public Use
  Company Number: US-BAYER-2017-200722

PATIENT
  Age: 65 Year
  Sex: Female

DRUGS (1)
  1. CLIMARA PRO [Suspect]
     Active Substance: ESTRADIOL\LEVONORGESTREL
     Indication: PREMATURE MENOPAUSE
     Dosage: 0.045MG/0.015MG
     Route: 062
     Dates: start: 2002

REACTIONS (2)
  - Mass excision [Unknown]
  - Product physical issue [Unknown]

NARRATIVE: CASE EVENT DATE: 2004
